FAERS Safety Report 23933003 (Version 1)
Quarter: 2024Q2

REPORT INFORMATION
  Report Type: Spontaneous
  Country: JP (occurrence: JP)
  Receive Date: 20240603
  Receipt Date: 20240603
  Transmission Date: 20240715
  Serious: Yes (Hospitalization, Other)
  Sender: FDA-Public Use
  Company Number: JP-BAYER-2024A076072

PATIENT
  Age: 61 Year
  Sex: Female

DRUGS (1)
  1. NEXAVAR [Suspect]
     Active Substance: SORAFENIB
     Indication: Thyroid cancer
     Dosage: 200 MG, QD
     Route: 048
     Dates: end: 2024

REACTIONS (3)
  - Interstitial lung disease [Not Recovered/Not Resolved]
  - Metastases to lung [None]
  - Oxygen saturation decreased [None]

NARRATIVE: CASE EVENT DATE: 20240101
